FAERS Safety Report 7637832-2 (Version None)
Quarter: 2011Q3

REPORT INFORMATION
  Report Type: 
  Country: None (occurrence: None)
  Receive Date: 20110718
  Receipt Date: 20110713
  Transmission Date: 20111222
  Serious: Yes (Other)
  Sender: FDA-Public Use
  Company Number: 2011029179

PATIENT
  Age: 50 Year
  Sex: Female
  Weight: 78.9259 kg

DRUGS (35)
  1. ASCORBIC ACID [Concomitant]
  2. CHLORZOXAZONE [Concomitant]
  3. XYZAL [Concomitant]
  4. FLONASE [Concomitant]
  5. ALBUTEROL [Concomitant]
  6. TESSALON [Concomitant]
  7. PROMETHAZIDE (PROMETHAZINE) [Concomitant]
  8. PREDNISONE [Concomitant]
  9. IBUPROFEN [Concomitant]
  10. PRENATAL (PRENATAL /00231801/) [Concomitant]
  11. KLONOPIN [Concomitant]
  12. SYMBICORT [Concomitant]
  13. CIPRO [Concomitant]
  14. SEROQUEL [Concomitant]
  15. FISH OIL (FISH OIL) [Concomitant]
  16. OXYBUTYNIN (OXYBUTUNIN) [Concomitant]
  17. TREXIMET (SUMATRIPTAN) [Concomitant]
  18. RANITIDINE [Concomitant]
  19. THEOPHYLLINE [Concomitant]
  20. HIZENTRA [Suspect]
     Indication: IMMUNODEFICIENCY COMMON VARIABLE
     Dosage: (10 G 1X/WEEK, 2 GM 10 ML VIAL; 50 ML IN 4 SITES OVER 1 HOUR 17 MINUTES SUBCUTANEOUS), (10 G 1X/WEEK
     Route: 058
     Dates: start: 20110630
  21. HIZENTRA [Suspect]
     Indication: IMMUNODEFICIENCY COMMON VARIABLE
     Dosage: (10 G 1X/WEEK, 2 GM 10 ML VIAL; 50 ML IN 4 SITES OVER 1 HOUR 17 MINUTES SUBCUTANEOUS), (10 G 1X/WEEK
     Route: 058
     Dates: start: 20101103
  22. VITAMIN B (VITAMIN B) [Concomitant]
  23. FOSAMAX [Concomitant]
  24. CELEBREX [Concomitant]
  25. PROAIR (PROCATEROL HYDROCHLORIDE) [Concomitant]
  26. DIOVAN + D (OYSTER SHEEL CALCIUM WITH VITAMIN D/01675501/) [Concomitant]
  27. PRAVASTATIN [Concomitant]
  28. VICODIN [Concomitant]
  29. MAGNESIUM (MAGNESIUM) [Concomitant]
  30. OMEPRAZOLE [Concomitant]
  31. GABAPENTIN [Concomitant]
  32. PREMPRO (PROVELLA-14) [Concomitant]
  33. SINGULAIR [Concomitant]
  34. CELEXA [Concomitant]
  35. ATARAX [Concomitant]

REACTIONS (1)
  - KIDNEY INFECTION [None]
